FAERS Safety Report 15465115 (Version 2)
Quarter: 2020Q3

REPORT INFORMATION
  Report Type: Spontaneous
  Country: US (occurrence: US)
  Receive Date: 20181004
  Receipt Date: 20200915
  Transmission Date: 20201102
  Serious: Yes (Hospitalization)
  Sender: FDA-Public Use
  Company Number: US-JAZZ-2017-US-015995

PATIENT
  Age: 19 Year
  Sex: Male
  Weight: 132.4 kg

DRUGS (7)
  1. RUXOLITINIB [Suspect]
     Active Substance: RUXOLITINIB
     Indication: B-CELL TYPE ACUTE LEUKAEMIA
     Dosage: 80 MG, 14 DAYS ON 14 DAYS OFF
     Route: 048
     Dates: start: 20161111
  2. METHOTREXATE. [Suspect]
     Active Substance: METHOTREXATE
     Indication: B-CELL TYPE ACUTE LEUKAEMIA
     Dosage: 15 MG, D29 AND D36
     Route: 037
     Dates: start: 20161111
  3. CYCLOPHOSPHAMIDE. [Suspect]
     Active Substance: CYCLOPHOSPHAMIDE
     Indication: B-CELL TYPE ACUTE LEUKAEMIA
     Dosage: 2540 MG, D29
     Route: 042
     Dates: start: 20161111
  4. THIOGUANINE [Suspect]
     Active Substance: THIOGUANINE
     Indication: B-CELL TYPE ACUTE LEUKAEMIA
     Dosage: 600 MG, QD
     Route: 048
     Dates: start: 20170522
  5. ERWINAZE [Suspect]
     Active Substance: ASPARAGINASE ERWINIA CHRYSANTHEMI
     Indication: B-CELL TYPE ACUTE LEUKAEMIA
     Dosage: 60000 U, QOD, D43 ?52
     Route: 030
     Dates: start: 20161126
  6. VINCRISTINE [Suspect]
     Active Substance: VINCRISTINE
     Indication: B-CELL TYPE ACUTE LEUKAEMIA
     Dosage: 2 MG,DAYS 1,8,15
     Route: 042
     Dates: start: 20161125
  7. CYTARABINE. [Suspect]
     Active Substance: CYTARABINE
     Indication: B-CELL TYPE ACUTE LEUKAEMIA
     Dosage: 191 MG, QD, D29 ? 32, DAY 36?39
     Route: 042
     Dates: start: 20161111

REACTIONS (2)
  - Pyrexia [Recovered/Resolved]
  - Nausea [Recovered/Resolved]

NARRATIVE: CASE EVENT DATE: 20170718
